FAERS Safety Report 5047225-2 (Version None)
Quarter: 2006Q3

REPORT INFORMATION
  Report Type: 
  Country: None (occurrence: None)
  Receive Date: 20060703
  Receipt Date: 20060623
  Transmission Date: 20061208
  Serious: Yes (Other)
  Sender: FDA-Public Use
  Company Number: 2006-06-1730

PATIENT
  Sex: Female

DRUGS (2)
  1. PEG-INTERFERON (PEGINTERFERON ALFA-2B) INJECTABLE POWDER [Suspect]
     Indication: HEPATITIS C
     Dosage: 100 MCG QW SUBCUTANEOUS
     Route: 058
     Dates: start: 20050101, end: 20060502
  2. REBETOL [Suspect]
     Indication: HEPATITIS C
     Dosage: 800 MG ORAL
     Route: 048
     Dates: start: 20050101, end: 20060502

REACTIONS (4)
  - HYPERTHYROIDISM [None]
  - SQUAMOUS CELL CARCINOMA [None]
  - THYROID DISORDER [None]
  - TONGUE NEOPLASM MALIGNANT STAGE UNSPECIFIED [None]
